FAERS Safety Report 8623515-9 (Version None)
Quarter: 2012Q3

REPORT INFORMATION
  Report Type: 
  Country: None (occurrence: None)
  Receive Date: 20120827
  Receipt Date: 20120814
  Transmission Date: 20120928
  Serious: Yes (Hospitalization)
  Sender: FDA-Public Use
  Company Number: US-VERTEX PHARMACEUTICAL INC.-AE-2012-009213

PATIENT
  Sex: Male

DRUGS (4)
  1. RIBASPHERE [Concomitant]
     Indication: HEPATITIS C
     Dosage: 600 MG, BID
     Route: 048
     Dates: start: 20120523
  2. INCIVEK [Suspect]
     Indication: HEPATITIS C
     Dosage: 750 MG, TID
     Route: 048
     Dates: start: 20120523
  3. PEGASYS [Concomitant]
     Indication: HEPATITIS C
     Dosage: 180 UNK, UNK
     Route: 058
     Dates: start: 20120523
  4. RIBASPHERE [Concomitant]
     Dosage: UNK

REACTIONS (10)
  - DISTURBANCE IN ATTENTION [None]
  - FATIGUE [None]
  - RASH [None]
  - PANCYTOPENIA [None]
  - INFLUENZA LIKE ILLNESS [None]
  - COUGH [None]
  - PAROSMIA [None]
  - ASTHENIA [None]
  - NAUSEA [None]
  - DYSGEUSIA [None]
